FAERS Safety Report 6134271-0 (Version None)
Quarter: 2009Q1

REPORT INFORMATION
  Report Type: 
  Country: None (occurrence: None)
  Receive Date: 20090325
  Receipt Date: 20090310
  Transmission Date: 20090719
  Serious: Yes (Hospitalization)
  Sender: FDA-Public Use
  Company Number: 2009S1004783

PATIENT
  Age: 79 Year
  Sex: Male

DRUGS (8)
  1. THEOPHYLLINE [Suspect]
     Indication: CHRONIC OBSTRUCTIVE PULMONARY DISEASE
     Dosage: 400 MG;ORAL
     Route: 048
     Dates: end: 20090119
  2. FUROSEMIDE [Suspect]
     Indication: RENAL IMPAIRMENT
     Dosage: 40 MG;ORAL
     Route: 048
  3. RAMIPRIL [Suspect]
     Indication: RENAL IMPAIRMENT
     Dosage: 2.5 MG;ORAL
     Route: 048
  4. XIPAMIDE (XIPAMIDE) [Suspect]
     Indication: HYPERTENSION
     Dosage: 20 MG;ORAL
     Route: 048
  5. CAPTOPRIL [Suspect]
     Indication: HYPERTENSION
     Dosage: 25 MG;ORAL
     Route: 048
  6. VERAPAMIL [Suspect]
     Indication: HYPERTENSION
     Dosage: 240 MG;ORAL
     Route: 047
  7. PANTOZOL [Concomitant]
  8. DOMPERIDONE [Concomitant]

REACTIONS (2)
  - HYPOTENSION [None]
  - TACHYCARDIA [None]
